FAERS Safety Report 18503684 (Version 1)
Quarter: 2020Q4

REPORT INFORMATION
  Report Type: Spontaneous
  Country: US (occurrence: US)
  Receive Date: 20201113
  Receipt Date: 20201113
  Transmission Date: 20210114
  Serious: Yes (Other)
  Sender: FDA-Public Use
  Company Number: US-TEVA-2020-US-1848314

PATIENT
  Sex: Female

DRUGS (24)
  1. CLONAZEPAM. [Concomitant]
     Active Substance: CLONAZEPAM
  2. MILNACIPRAN [Concomitant]
     Active Substance: MILNACIPRAN
  3. TRAZODONE [Concomitant]
     Active Substance: TRAZODONE HYDROCHLORIDE
  4. LATUDA [Concomitant]
     Active Substance: LURASIDONE HYDROCHLORIDE
  5. LYRICA [Concomitant]
     Active Substance: PREGABALIN
  6. ONDANSETRON [Concomitant]
     Active Substance: ONDANSETRON
  7. SAVELLA [Concomitant]
     Active Substance: MILNACIPRAN HYDROCHLORIDE
  8. TOPIRAMATE. [Concomitant]
     Active Substance: TOPIRAMATE
  9. BACLOFEN. [Concomitant]
     Active Substance: BACLOFEN
  10. CHOLECALCIFEROL [Concomitant]
     Active Substance: CHOLECALCIFEROL
  11. COPAXONE [Suspect]
     Active Substance: GLATIRAMER ACETATE
     Indication: MULTIPLE SCLEROSIS
     Dosage: FORM STRENGTH AND DOSE: UNKNOWN
     Route: 065
  12. DOCUSATE SODIUM. [Concomitant]
     Active Substance: DOCUSATE SODIUM
  13. NARCAN [Concomitant]
     Active Substance: NALOXONE HYDROCHLORIDE
  14. THIAMINE HCI [Concomitant]
  15. TIGAN [Concomitant]
     Active Substance: TRIMETHOBENZAMIDE HYDROCHLORIDE
  16. ERGOCALCIFEROL. [Concomitant]
     Active Substance: ERGOCALCIFEROL
  17. FOLIC ACID. [Concomitant]
     Active Substance: FOLIC ACID
  18. QUETIAPINE. [Concomitant]
     Active Substance: QUETIAPINE
  19. SENNA [Concomitant]
     Active Substance: SENNA LEAF\SENNOSIDES\SENNOSIDES A AND B
  20. ALBUTEROL. [Concomitant]
     Active Substance: ALBUTEROL
  21. MOMETASONE [Concomitant]
     Active Substance: MOMETASONE
  22. XARELTO [Concomitant]
     Active Substance: RIVAROXABAN
  23. BUPROPION. [Concomitant]
     Active Substance: BUPROPION
  24. CYANOCOBALAMIN. [Concomitant]
     Active Substance: CYANOCOBALAMIN

REACTIONS (14)
  - Dyspnoea [Unknown]
  - Memory impairment [Unknown]
  - Insomnia [Unknown]
  - Fungal infection [Unknown]
  - Upper limb fracture [Unknown]
  - Pollakiuria [Unknown]
  - Treatment failure [Unknown]
  - Fall [Unknown]
  - Visual impairment [Unknown]
  - Confusional state [Unknown]
  - Constipation [Unknown]
  - Drug intolerance [Unknown]
  - Pain [Unknown]
  - Malaise [Unknown]
